FAERS Safety Report 11153028 (Version 3)
Quarter: 2016Q1

REPORT INFORMATION
  Report Type: Report from Study
  Country: US (occurrence: US)
  Receive Date: 20150601
  Receipt Date: 20160331
  Transmission Date: 20160525
  Serious: Yes (Hospitalization, Other)
  Sender: FDA-Public Use
  Company Number: US-ACTELION-A-US2015-118620

PATIENT
  Age: 79 Year
  Sex: Female

DRUGS (1)
  1. MACITENTAN [Suspect]
     Active Substance: MACITENTAN
     Indication: PULMONARY HYPERTENSION
     Dosage: 10 MG, QD
     Route: 048
     Dates: start: 20141112

REACTIONS (4)
  - Fall [Unknown]
  - Foot operation [Unknown]
  - Impaired healing [Unknown]
  - Balance disorder [Unknown]

NARRATIVE: CASE EVENT DATE: 201512
